FAERS Safety Report 9048519 (Version 1)
Quarter: 2013Q1

REPORT INFORMATION
  Report Type: Spontaneous
  Country: US (occurrence: None)
  Receive Date: 20130116
  Receipt Date: 20130116
  Transmission Date: 20140127
  Serious: Yes (Other)
  Sender: FDA-Public Use
  Company Number: USA/USA/13/0027438

PATIENT
  Age: 62 Year
  Sex: Female

DRUGS (2)
  1. ZOLPIDEM [Suspect]
     Indication: INSOMNIA
  2. PAROXETINE (PAROXETINE) [Suspect]
     Indication: ANXIETY

REACTIONS (15)
  - Consciousness fluctuating [None]
  - Cognitive disorder [None]
  - Delusion [None]
  - Dissociative disorder [None]
  - Confusional state [None]
  - Speech disorder [None]
  - Confabulation [None]
  - Drug interaction [None]
  - Homicide [None]
  - Overdose [None]
  - Anterograde amnesia [None]
  - Suicidal ideation [None]
  - Psychotic disorder [None]
  - Delirium [None]
  - Disorientation [None]
